FAERS Safety Report 24162683 (Version 1)
Quarter: 2024Q3

REPORT INFORMATION
  Report Type: Spontaneous
  Country: US (occurrence: US)
  Receive Date: 20240801
  Receipt Date: 20240801
  Transmission Date: 20241017
  Serious: Yes (Life-Threatening)
  Sender: EAGLE
  Company Number: US-EAGLE PHARMACEUTICALS, INC.-US-2024EAG000179

PATIENT
  Sex: Male

DRUGS (1)
  1. BARHEMSYS [Suspect]
     Active Substance: AMISULPRIDE
     Indication: Prophylaxis of nausea and vomiting
     Dosage: 5 MG
     Route: 042
     Dates: start: 202401, end: 202401

REACTIONS (1)
  - Acute myocardial infarction [Unknown]

NARRATIVE: CASE EVENT DATE: 20240101
